FAERS Safety Report 15855955 (Version 1)
Quarter: 2019Q1

REPORT INFORMATION
  Report Type: Report from Study
  Country: None (occurrence: US)
  Receive Date: 20190122
  Receipt Date: 20190122
  Transmission Date: 20190417
  Serious: Yes (Hospitalization)
  Sender: FDA-Public Use
  Company Number: US-ABBVIE-18K-163-2557790-00

PATIENT
  Age: 67 Year
  Sex: Male

DRUGS (4)
  1. VENCLEXTA [Suspect]
     Active Substance: VENETOCLAX
     Indication: CHRONIC LYMPHOCYTIC LEUKAEMIA
     Route: 048
     Dates: start: 201712, end: 201712
  2. VENCLEXTA [Suspect]
     Active Substance: VENETOCLAX
     Indication: HYPERCHOLESTEROLAEMIA
     Route: 048
     Dates: start: 20171218
  3. METOPROLOL. [Concomitant]
     Active Substance: METOPROLOL
     Indication: CARDIAC MURMUR
     Route: 048
  4. SIMVASTATIN. [Concomitant]
     Active Substance: SIMVASTATIN
     Indication: PRODUCT USED FOR UNKNOWN INDICATION
     Route: 048

REACTIONS (12)
  - Aphasia [Recovered/Resolved]
  - Hypoaesthesia [Recovered/Resolved]
  - Hypoaesthesia oral [Recovered/Resolved]
  - Mental status changes [Recovered/Resolved]
  - Hypoaesthesia [Recovered/Resolved]
  - Mental status changes [Recovered/Resolved]
  - Aphasia [Recovered/Resolved]
  - Asthenia [Recovered/Resolved]
  - Hypoaesthesia oral [Recovered/Resolved]
  - Tumour lysis syndrome [Recovered/Resolved]
  - Platelet count abnormal [Not Recovered/Not Resolved]
  - Aura [Unknown]

NARRATIVE: CASE EVENT DATE: 201712
